FAERS Safety Report 11533989 (Version 3)
Quarter: 2015Q4

REPORT INFORMATION
  Report Type: Report from Study
  Country: US (occurrence: US)
  Receive Date: 20150922
  Receipt Date: 20151127
  Transmission Date: 20160304
  Serious: Yes (Hospitalization, Other)
  Sender: FDA-Public Use
  Company Number: US-ALEXION-A201502038

PATIENT
  Age: 79 Year
  Sex: Female

DRUGS (2)
  1. SOLIRIS [Suspect]
     Active Substance: ECULIZUMAB
     Indication: THROMBOTIC MICROANGIOPATHY
     Dosage: 1200 MG, UNK
     Route: 042
     Dates: start: 20150513
  2. SOLIRIS [Suspect]
     Active Substance: ECULIZUMAB
     Indication: OFF LABEL USE

REACTIONS (5)
  - Lung carcinoma cell type unspecified recurrent [Not Recovered/Not Resolved]
  - Haemoglobin abnormal [Unknown]
  - Off label use [Not Recovered/Not Resolved]
  - Dyspnoea [Recovered/Resolved]
  - Pain in extremity [Not Recovered/Not Resolved]

NARRATIVE: CASE EVENT DATE: 20150528
